FAERS Safety Report 5749073-4 (Version None)
Quarter: 2008Q2

REPORT INFORMATION
  Report Type: 
  Country: None (occurrence: None)
  Receive Date: 20080527
  Receipt Date: 20080522
  Transmission Date: 20081010
  Serious: Yes (Hospitalization)
  Sender: FDA-Public Use
  Company Number: US-BRISTOL-MYERS SQUIBB COMPANY-14165633

PATIENT
  Age: 46 Year
  Sex: Female

DRUGS (6)
  1. ABILIFY [Suspect]
     Indication: SCHIZOAFFECTIVE DISORDER
     Dosage: STD 5MG/2WKS,THEN INCREASED TO 10MG THAN TO 15MG/1WK + 20MGQD
     Route: 048
  2. RISPERDAL [Suspect]
     Route: 048
  3. DEPAKOTE [Concomitant]
  4. SEROQUEL [Concomitant]
     Dosage: INCREASED FROM 400MG
  5. LEXAPRO [Concomitant]
  6. ATIVAN [Concomitant]

REACTIONS (2)
  - DELUSION OF GRANDEUR [None]
  - MANIA [None]
